FAERS Safety Report 5537871-1 (Version None)
Quarter: 2007Q4

REPORT INFORMATION
  Report Type: 
  Country: None (occurrence: None)
  Receive Date: 20071207
  Receipt Date: 20071127
  Transmission Date: 20080405
  Serious: Yes (Hospitalization)
  Sender: FDA-Public Use
  Company Number: BR-PFIZER INC-2007100881

PATIENT
  Age: 71 Year
  Sex: Female

DRUGS (3)
  1. CHAMPIX [Suspect]
     Indication: SMOKING CESSATION THERAPY
     Route: 048
     Dates: start: 20070404, end: 20070511
  2. FRONTAL [Concomitant]
     Route: 048
     Dates: start: 20070404, end: 20070511
  3. PSYLLIUM HYDROPHILIC MUCILLOID [Concomitant]
     Route: 048

REACTIONS (3)
  - CONSTIPATION [None]
  - DIVERTICULITIS [None]
  - MALAISE [None]
